FAERS Safety Report 11658677 (Version 1)
Quarter: 2015Q4

REPORT INFORMATION
  Report Type: Spontaneous
  Country: JP (occurrence: JP)
  Receive Date: 20151026
  Receipt Date: 20151026
  Transmission Date: 20160304
  Serious: Yes (Other)
  Sender: FDA-Public Use
  Company Number: PHHY2015JP130381

PATIENT
  Sex: Male

DRUGS (1)
  1. VOTRIENT [Suspect]
     Active Substance: PAZOPANIB HYDROCHLORIDE
     Indication: SOFT TISSUE SARCOMA
     Dosage: 800 MG, QD
     Route: 048
     Dates: start: 201304, end: 201506

REACTIONS (15)
  - Ascites [Unknown]
  - Metastases to lung [Unknown]
  - Malaise [Unknown]
  - Pain [Unknown]
  - Muscular weakness [Unknown]
  - Hepatic neoplasm [Unknown]
  - Pleural effusion [Unknown]
  - Oedema peripheral [Unknown]
  - Abdominal discomfort [Unknown]
  - Faeces soft [Unknown]
  - Headache [Unknown]
  - Decreased appetite [Unknown]
  - Hair colour changes [Unknown]
  - Dysgeusia [Unknown]
  - Diarrhoea [Recovered/Resolved]

NARRATIVE: CASE EVENT DATE: 201304
